FAERS Safety Report 10584072 (Version 1)
Quarter: 2014Q4

REPORT INFORMATION
  Report Type: Spontaneous
  Country: US (occurrence: None)
  Receive Date: 20141113
  Receipt Date: 20141113
  Transmission Date: 20150529
  Serious: No
  Sender: FDA-Public Use
  Company Number: None

PATIENT
  Age: 54 Year
  Sex: Female

DRUGS (1)
  1. CARISOPRODOL 350MG WATSON [Suspect]
     Active Substance: CARISOPRODOL
     Indication: MUSCLE STRAIN
     Dosage: 1/4 TABLET  TAKEN BY MOUTH
     Route: 048
     Dates: start: 20141017, end: 20141017

REACTIONS (2)
  - Nausea [None]
  - Drug ineffective [None]

NARRATIVE: CASE EVENT DATE: 20141017
